FAERS Safety Report 7659743-9 (Version None)
Quarter: 2011Q3

REPORT INFORMATION
  Report Type: 
  Country: None (occurrence: None)
  Receive Date: 20110805
  Receipt Date: 20110729
  Transmission Date: 20111222
  Serious: Yes (Disabling, Other)
  Sender: FDA-Public Use
  Company Number: PHHY2011JP62475

PATIENT
  Age: 87 Year
  Sex: Female

DRUGS (7)
  1. CEFEPIME HYDROCHLORIDE [Suspect]
     Indication: PYREXIA
     Dosage: UNK UKN, UNK
     Route: 042
     Dates: start: 20110704, end: 20110711
  2. SOLDEM 3PG [Concomitant]
     Route: 042
  3. URSO 250 [Concomitant]
     Route: 048
  4. NYROZIN [Concomitant]
     Route: 042
  5. AMLODIPINE [Concomitant]
     Route: 048
  6. LASIX [Concomitant]
     Route: 042
  7. FAMOTIDINE [Concomitant]
     Dosage: UNK
     Route: 042
     Dates: start: 20110705, end: 20110711

REACTIONS (8)
  - PLEURAL EFFUSION [None]
  - HAEMOGLOBIN DECREASED [None]
  - GALLBLADDER OEDEMA [None]
  - CHOLECYSTITIS ACUTE [None]
  - YELLOW SKIN [None]
  - PYREXIA [None]
  - BLOOD UREA INCREASED [None]
  - JAUNDICE [None]
